FAERS Safety Report 17371528 (Version 2)
Quarter: 2020Q1

REPORT INFORMATION
  Report Type: Spontaneous
  Country: US (occurrence: US)
  Receive Date: 20200205
  Receipt Date: 20200213
  Transmission Date: 20200409
  Serious: No
  Sender: FDA-Public Use
  Company Number: US-009507513-2001USA002561

PATIENT
  Sex: Female
  Weight: 62 kg

DRUGS (4)
  1. NEXPLANON [Suspect]
     Active Substance: ETONOGESTREL
     Indication: CONTRACEPTION
     Dosage: 1 EVERY 3 YEARS
     Route: 059
  2. TOPIRAMATE. [Concomitant]
     Active Substance: TOPIRAMATE
     Indication: MIGRAINE
     Dosage: 75 MILLIGRAM, TOTAL DAILY DOSAGE:150
     Route: 048
     Dates: start: 20190816
  3. IBUPROFEN. [Concomitant]
     Active Substance: IBUPROFEN
     Indication: MIGRAINE
     Dosage: 800 MILLIGRAM,, TOTAL DAILY DOSE:2400 PRN
     Route: 048
     Dates: start: 20191001
  4. NEXPLANON [Suspect]
     Active Substance: ETONOGESTREL
     Dosage: 1 DOSAGE FORM
     Route: 059

REACTIONS (4)
  - Device expulsion [Recovered/Resolved]
  - Complication of device insertion [Recovered/Resolved]
  - Product quality issue [Unknown]
  - Wrong technique in product usage process [Unknown]
